FAERS Safety Report 7545109-9 (Version None)
Quarter: 2011Q2

REPORT INFORMATION
  Report Type: 
  Country: None (occurrence: None)
  Receive Date: 20110610
  Receipt Date: 20110610
  Transmission Date: 20111010
  Serious: Yes (Other)
  Sender: FDA-Public Use
  Company Number: None

PATIENT
  Sex: Female
  Weight: 90.7194 kg

DRUGS (3)
  1. LOVASTATIN [Suspect]
     Indication: BLOOD CHOLESTEROL
     Dosage: 1/1 TAB DAILY PO
     Route: 048
     Dates: start: 20100101, end: 20110519
  2. AMLODIPINE [Suspect]
     Indication: HYPERTENSION
     Dosage: 1/1 TAB DAILY PO
     Route: 048
     Dates: start: 20100101, end: 20110519
  3. AMLODIPINE [Suspect]
     Indication: CEREBROVASCULAR ACCIDENT
     Dosage: 1/1 TAB DAILY PO
     Route: 048
     Dates: start: 20100101, end: 20110519

REACTIONS (4)
  - ABDOMINAL DISTENSION [None]
  - CONSTIPATION [None]
  - OEDEMA PERIPHERAL [None]
  - SWELLING [None]
